FAERS Safety Report 15757804 (Version 2)
Quarter: 2018Q4

REPORT INFORMATION
  Report Type: Spontaneous
  Country: CA (occurrence: CA)
  Receive Date: 20181225
  Receipt Date: 20181228
  Transmission Date: 20190205
  Serious: Yes (Other)
  Sender: FDA-Public Use
  Company Number: CA-CELLTRION INC.-2018CA021254

PATIENT

DRUGS (8)
  1. INFLECTRA [Suspect]
     Active Substance: INFLIXIMAB-DYYB
     Dosage: 5MG PER KG/Q 0, 2, 6WEEKS, THEN EVERY 8 WEEKS
     Route: 042
     Dates: start: 20180830
  2. INFLECTRA [Suspect]
     Active Substance: INFLIXIMAB-DYYB
     Dosage: 5MG PER KG/Q 0, 2,6WEEKS, THEN EVERY 8 WEEKS;
     Route: 042
     Dates: start: 20180605
  3. INFLECTRA [Suspect]
     Active Substance: INFLIXIMAB-DYYB
     Dosage: 5MG PER KG/Q 0, 2,6WEEKS, THEN EVERY 8 WEEKS;
     Route: 042
     Dates: start: 20180605
  4. IMURAN [Concomitant]
     Active Substance: AZATHIOPRINE
     Dosage: UNK
     Dates: start: 201803
  5. INFLECTRA [Suspect]
     Active Substance: INFLIXIMAB-DYYB
     Indication: COLITIS ULCERATIVE
     Dosage: 5MG PER KG/Q 0, 2,6WEEKS, THEN EVERY 8 WEEKS;
     Route: 042
     Dates: start: 20180522
  6. INFLECTRA [Suspect]
     Active Substance: INFLIXIMAB-DYYB
     Dosage: 5 MG/KG, EVERY 0, 2, 6 WEEKS, THEN EVERY 8 WEEKS
     Route: 042
     Dates: start: 20181026, end: 20181026
  7. CRESTOR [Concomitant]
     Active Substance: ROSUVASTATIN CALCIUM
     Dosage: UNK
  8. PREDNISONE. [Concomitant]
     Active Substance: PREDNISONE
     Dosage: 20MG TAPER 5 MG WEEKLY
     Dates: start: 201802

REACTIONS (4)
  - Nasopharyngitis [Unknown]
  - Antibody test abnormal [Unknown]
  - Condition aggravated [Unknown]
  - Prostate infection [Unknown]

NARRATIVE: CASE EVENT DATE: 201806
